FAERS Safety Report 8174322-5 (Version None)
Quarter: 2012Q1

REPORT INFORMATION
  Report Type: 
  Country: None (occurrence: None)
  Receive Date: 20120229
  Receipt Date: 20120222
  Transmission Date: 20120608
  Serious: Yes (Hospitalization, Other)
  Sender: FDA-Public Use
  Company Number: US-BAYER-2012-018559

PATIENT
  Age: 41 Year
  Sex: Female
  Weight: 128 kg

DRUGS (9)
  1. TOPAMAX [Concomitant]
     Dosage: DAILY DOSE 100 MG
  2. LISINOPRIL [Concomitant]
     Dosage: DAILY DOSE 5 MG
  3. IBUPROFEN [Concomitant]
     Dosage: 800 MG, UNK
  4. YASMIN [Suspect]
     Dosage: UNK
  5. AVANDIA [Concomitant]
     Dosage: 04 MG, UNK
     Route: 048
  6. POTASSIUM CHLORIDE [Concomitant]
     Route: 048
  7. IRON [Concomitant]
  8. COLACE [Concomitant]
  9. FUROSEMIDE [Concomitant]
     Route: 048

REACTIONS (2)
  - DEEP VEIN THROMBOSIS [None]
  - PULMONARY EMBOLISM [None]
